FAERS Safety Report 10619330 (Version 1)
Quarter: 2014Q4

REPORT INFORMATION
  Report Type: Spontaneous
  Country: US (occurrence: US)
  Receive Date: 20141202
  Receipt Date: 20141202
  Transmission Date: 20150529
  Serious: Yes (Death, Hospitalization)
  Sender: FDA-Public Use
  Company Number: US-RB PHARMACEUTICALS LIMITED-RB-73708-2014

PATIENT
  Age: 48 Year
  Sex: Female

DRUGS (2)
  1. SUBOXONE [Suspect]
     Active Substance: BUPRENORPHINE HYDROCHLORIDE\NALOXONE HYDROCHLORIDE
     Indication: PRODUCT USED FOR UNKNOWN INDICATION
     Dosage: 10 MG, ONCE IN MORNING AND ONCE IN EVENING
     Route: 060
     Dates: start: 201411, end: 201411
  2. PHENOBARBITAL. [Concomitant]
     Active Substance: PHENOBARBITAL
     Indication: PRODUCT USED FOR UNKNOWN INDICATION
     Dosage: 45 MG, TID
     Route: 065

REACTIONS (3)
  - Detoxification [Recovered/Resolved]
  - Death [Fatal]
  - Drug prescribing error [Recovered/Resolved]

NARRATIVE: CASE EVENT DATE: 201411
